FAERS Safety Report 9827248 (Version 1)
Quarter: 2014Q1

REPORT INFORMATION
  Report Type: Spontaneous
  Country: US (occurrence: US)
  Receive Date: 20140117
  Receipt Date: 20140117
  Transmission Date: 20141002
  Serious: No
  Sender: FDA-Public Use
  Company Number: US-BRISTOL-MYERS SQUIBB COMPANY-19695964

PATIENT
  Age: 63 Year
  Sex: Male
  Weight: 115.64 kg

DRUGS (2)
  1. YERVOY [Suspect]
     Indication: MALIGNANT MELANOMA
  2. MULTIVITAMINS [Concomitant]

REACTIONS (1)
  - Anxiety [Unknown]
